FAERS Safety Report 6209286-4 (Version None)
Quarter: 2009Q2

REPORT INFORMATION
  Report Type: 
  Country: None (occurrence: None)
  Receive Date: 20090529
  Receipt Date: 20090515
  Transmission Date: 20091009
  Serious: Yes (Death)
  Sender: FDA-Public Use
  Company Number: GB-SANOFI-SYNTHELABO-F01200900482

PATIENT
  Age: 59 Year
  Sex: Female

DRUGS (3)
  1. FLUOROURACIL [Suspect]
     Dosage: 625 MG BOLUS FOLLOWED BY A 46 HOUR INFUSION OF 3825 MG
     Route: 041
     Dates: start: 20080630, end: 20080701
  2. FOLINIC ACID [Suspect]
     Route: 041
     Dates: start: 20080630, end: 20080630
  3. OXALIPLATIN [Suspect]
     Indication: COLORECTAL CANCER METASTATIC
     Dosage: 135 MG
     Route: 041
     Dates: start: 20080630, end: 20080630

REACTIONS (1)
  - SUDDEN CARDIAC DEATH [None]
